FAERS Safety Report 5820537-8 (Version None)
Quarter: 2008Q3

REPORT INFORMATION
  Report Type: 
  Country: None (occurrence: None)
  Receive Date: 20080724
  Receipt Date: 20071001
  Transmission Date: 20090109
  Serious: No
  Sender: FDA-Public Use
  Company Number: A0685298A

PATIENT
  Sex: Male

DRUGS (3)
  1. AVANDIA [Suspect]
     Indication: DRUG USE FOR UNKNOWN INDICATION
  2. JANUVIA [Concomitant]
  3. GLYBURIDE [Concomitant]

REACTIONS (2)
  - MALAISE [None]
  - PAIN [None]
